FAERS Safety Report 7240774-8 (Version None)
Quarter: 2011Q1

REPORT INFORMATION
  Report Type: 
  Country: None (occurrence: None)
  Receive Date: 20110120
  Receipt Date: 20110120
  Transmission Date: 20110831
  Serious: No
  Sender: FDA-Public Use
  Company Number: None

PATIENT

DRUGS (1)
  1. COZAAR [Suspect]
     Indication: HYPERTENSION
     Dosage: ASK DR. CHERRY 1 DAILY 805-594-1240
     Dates: start: 20101124, end: 20101125

REACTIONS (3)
  - BLOOD PRESSURE INCREASED [None]
  - THERAPEUTIC RESPONSE UNEXPECTED WITH DRUG SUBSTITUTION [None]
  - PYREXIA [None]
